FAERS Safety Report 19831573 (Version 1)
Quarter: 2021Q3

REPORT INFORMATION
  Report Type: Spontaneous
  Country: US (occurrence: US)
  Receive Date: 20210915
  Receipt Date: 20210915
  Transmission Date: 20211014
  Serious: Yes (Hospitalization, Other)
  Sender: FDA-Public Use
  Company Number: US-APOTEX-2021AP042491

PATIENT
  Sex: Female

DRUGS (6)
  1. VERAPAMIL [Suspect]
     Active Substance: VERAPAMIL HYDROCHLORIDE
     Indication: PRODUCT USED FOR UNKNOWN INDICATION
     Dosage: UNK
     Route: 065
  2. FLECAINIDE [Suspect]
     Active Substance: FLECAINIDE
     Indication: ATRIAL FIBRILLATION
     Dosage: 100 MILLIGRAM, BID
     Route: 065
  3. DILTIAZEM. [Suspect]
     Active Substance: DILTIAZEM
     Indication: ATRIAL FIBRILLATION
     Dosage: UNK
     Route: 041
  4. FLECAINIDE [Suspect]
     Active Substance: FLECAINIDE
     Dosage: 150 MILLIGRAM, BID
     Route: 065
  5. APIXABAN [Concomitant]
     Active Substance: APIXABAN
     Indication: PRODUCT USED FOR UNKNOWN INDICATION
     Dosage: UNK
     Route: 065
  6. FUROSEMIDE. [Concomitant]
     Active Substance: FUROSEMIDE
     Indication: PRODUCT USED FOR UNKNOWN INDICATION
     Dosage: UNK
     Route: 065

REACTIONS (8)
  - Toxicity to various agents [Recovering/Resolving]
  - Acute kidney injury [Unknown]
  - Electrocardiogram QRS complex [Recovered/Resolved]
  - Device pacing issue [Recovered/Resolved]
  - Cardiogenic shock [Recovering/Resolving]
  - Bundle branch block right [Recovering/Resolving]
  - Stress cardiomyopathy [Recovering/Resolving]
  - Electrocardiogram QT prolonged [Recovering/Resolving]
